FAERS Safety Report 4984671-7 (Version None)
Quarter: 2006Q2

REPORT INFORMATION
  Report Type: 
  Country: None (occurrence: None)
  Receive Date: 20060427
  Receipt Date: 20060127
  Transmission Date: 20061013
  Serious: Yes (Hospitalization)
  Sender: FDA-Public Use
  Company Number: US-MERCK-0602USA00054

PATIENT
  Age: 76 Year
  Sex: Male
  Weight: 93 kg

DRUGS (11)
  1. HYDROCHLOROTHIAZIDE [Concomitant]
     Route: 065
  2. ATENOLOL [Concomitant]
     Route: 065
  3. ASPIRIN [Concomitant]
     Route: 065
  4. VITAMINS (UNSPECIFIED) [Concomitant]
     Route: 065
  5. LISINOPRIL [Concomitant]
     Route: 065
  6. LOVASTATIN [Concomitant]
     Route: 065
  7. FELODIPINE [Concomitant]
     Route: 065
  8. LANTUS [Concomitant]
     Route: 065
  9. HUMALOG [Concomitant]
     Route: 065
  10. VIOXX [Suspect]
     Indication: ARTHRITIS
     Route: 048
     Dates: start: 20020517, end: 20040930
  11. VIOXX [Suspect]
     Indication: BACK PAIN
     Route: 048
     Dates: start: 20020517, end: 20040930

REACTIONS (3)
  - ACUTE MYOCARDIAL INFARCTION [None]
  - ARTERIOSCLEROSIS [None]
  - HYPERTENSION [None]
